FAERS Safety Report 10648339 (Version 3)
Quarter: 2015Q1

REPORT INFORMATION
  Report Type: Spontaneous
  Country: IL (occurrence: IL)
  Receive Date: 20141212
  Receipt Date: 20150120
  Transmission Date: 20150720
  Serious: Yes (Hospitalization, Other)
  Sender: FDA-Public Use
  Company Number: IL-JNJFOC-20141201986

PATIENT
  Age: 51 Year
  Sex: Female

DRUGS (2)
  1. DOXORUBICIN HYDROCHLORIDE (CAELYX) [Suspect]
     Active Substance: DOXORUBICIN HYDROCHLORIDE
     Indication: BREAST CANCER
     Dosage: 40 UNITS
     Route: 042
     Dates: start: 20140915
  2. DOXORUBICIN HYDROCHLORIDE (CAELYX) [Suspect]
     Active Substance: DOXORUBICIN HYDROCHLORIDE
     Indication: BREAST CANCER
     Dosage: 40 UNITS
     Route: 042
     Dates: start: 20141104

REACTIONS (5)
  - Abscess [Unknown]
  - Skin exfoliation [Unknown]
  - Cellulitis [Unknown]
  - Fall [Unknown]
  - Disease progression [Unknown]

NARRATIVE: CASE EVENT DATE: 20141201
